FAERS Safety Report 11744920 (Version 1)
Quarter: 2015Q4

REPORT INFORMATION
  Report Type: Spontaneous
  Country: IT (occurrence: IT)
  Receive Date: 20151117
  Receipt Date: 20151117
  Transmission Date: 20160304
  Serious: Yes (Other)
  Sender: FDA-Public Use
  Company Number: IT-HOSPIRA-3078348

PATIENT
  Age: 3 Year
  Sex: Female
  Weight: 14 kg

DRUGS (3)
  1. VINCRISTINE [Concomitant]
     Active Substance: VINCRISTINE
     Indication: CHEMOTHERAPY
     Dosage: 0.9 MG
     Route: 042
  2. CARBOPLATIN. [Suspect]
     Active Substance: CARBOPLATIN
     Indication: CHEMOTHERAPY
     Dosage: DAILY
     Route: 042
     Dates: start: 20151103
  3. ONDANSETRON [Concomitant]
     Active Substance: ONDANSETRON
     Indication: INFANTILE VOMITING
     Route: 042

REACTIONS (5)
  - Vomiting [Recovered/Resolved]
  - Infusion related reaction [Recovered/Resolved]
  - Retching [Recovered/Resolved]
  - Paraesthesia [Recovered/Resolved]
  - Rash [Recovered/Resolved]

NARRATIVE: CASE EVENT DATE: 20151103
